FAERS Safety Report 23069271 (Version 2)
Quarter: 2023Q4

REPORT INFORMATION
  Report Type: Spontaneous
  Country: AU (occurrence: AU)
  Receive Date: 20231016
  Receipt Date: 20231208
  Transmission Date: 20240110
  Serious: Yes (Other)
  Sender: FDA-Public Use
  Company Number: AU-Orion Corporation ORION PHARMA-TAM 2023-0011

PATIENT
  Sex: Female

DRUGS (5)
  1. TAMOXIFEN CITRATE [Suspect]
     Active Substance: TAMOXIFEN CITRATE
     Indication: Breast neoplasm
     Dosage: UNK
  2. PACLITAXEL [Suspect]
     Active Substance: PACLITAXEL
     Indication: Breast neoplasm
     Dosage: AT WEEKLY PACLITAXEL X 6 CYCLES
     Dates: start: 20220922
  3. EXEMESTANE [Suspect]
     Active Substance: EXEMESTANE
     Indication: Breast neoplasm
     Dosage: UNK
     Dates: start: 20230514
  4. GOSERELIN ACETATE [Suspect]
     Active Substance: GOSERELIN ACETATE
     Indication: Breast neoplasm
     Dosage: UNK
  5. ANASTROZOLE [Suspect]
     Active Substance: ANASTROZOLE
     Indication: Breast neoplasm
     Dosage: 1 MG
     Dates: start: 20230815

REACTIONS (1)
  - Malignant neoplasm progression [Unknown]
